FAERS Safety Report 7047581-X (Version None)
Quarter: 2010Q4

REPORT INFORMATION
  Report Type: 
  Country: None (occurrence: None)
  Receive Date: 20101015
  Receipt Date: 20101005
  Transmission Date: 20110411
  Serious: Yes (Disabling, Other)
  Sender: FDA-Public Use
  Company Number: JP-ELI_LILLY_AND_COMPANY-JP201010000003

PATIENT
  Age: 71 Year
  Sex: Male

DRUGS (1)
  1. GEMZAR [Suspect]
     Indication: GALLBLADDER CANCER
     Dosage: 1500 MG, OTHER
     Route: 042
     Dates: start: 20080501, end: 20100401

REACTIONS (4)
  - ARTERIOSCLEROSIS OBLITERANS [None]
  - CEREBRAL INFARCTION [None]
  - LEG AMPUTATION [None]
  - VASCULAR INSUFFICIENCY [None]
